FAERS Safety Report 14475956 (Version 1)
Quarter: 2018Q1

REPORT INFORMATION
  Report Type: Spontaneous
  Country: ES (occurrence: ES)
  Receive Date: 20180201
  Receipt Date: 20180201
  Transmission Date: 20180509
  Serious: Yes (Other)
  Sender: FDA-Public Use
  Company Number: ES-PFIZER INC-2018039817

PATIENT
  Age: 65 Year
  Sex: Female
  Weight: 52 kg

DRUGS (10)
  1. FILGRASTIM [Concomitant]
     Active Substance: FILGRASTIM
     Indication: NEUTROPENIA
     Dosage: 302 UG, CYCLIC
     Route: 058
     Dates: start: 20170904, end: 20171017
  2. CYCLOPHOSPHAMIDE. [Suspect]
     Active Substance: CYCLOPHOSPHAMIDE
     Indication: BREAST CANCER
     Dosage: 89.4 MG, EVERY TWO WEEKS
     Route: 042
     Dates: start: 20170904, end: 20171017
  3. MYCOSTATIN [Concomitant]
     Active Substance: NYSTATIN
     Indication: OROPHARYNGEAL CANDIDIASIS
     Dosage: 10 ML, EVERY 6 HOURS
     Route: 048
     Dates: start: 20170904
  4. ATORVASTATINA [Concomitant]
     Active Substance: ATORVASTATIN
     Indication: HYPERLIPIDAEMIA
     Dosage: 10 MG, 1X/DAY
     Route: 048
     Dates: start: 20171209
  5. DOXORUBICIN HCL [Suspect]
     Active Substance: DOXORUBICIN HYDROCHLORIDE
     Indication: BREAST CANCER
     Dosage: 89.4 MG, EVERY TWO WEEKS
     Route: 042
     Dates: start: 20170904, end: 20171017
  6. PACLITAXEL ACCORD [Suspect]
     Active Substance: PACLITAXEL
     Indication: BREAST CANCER
     Dosage: 119.2 MG, CYCLIC
     Route: 042
     Dates: start: 20171107
  7. PRIMPERAN [Concomitant]
     Active Substance: METOCLOPRAMIDE HYDROCHLORIDE
     Indication: VOMITING
     Dosage: 10 MG, EVERY 8 HOURS
     Route: 048
     Dates: start: 20170904
  8. DEXAMETASONA [Concomitant]
     Active Substance: DEXAMETHASONE
     Indication: BREAST CANCER
     Dosage: 24 MG, WEEKLY
     Route: 048
     Dates: start: 20170904, end: 20171017
  9. OMEPRAZOL [Concomitant]
     Active Substance: OMEPRAZOLE
     Dosage: 20 MG, 1X/DAY
     Route: 048
     Dates: start: 20131004
  10. LOGIMAX [Concomitant]
     Active Substance: FELODIPINE\METOPROLOL SUCCINATE
     Indication: HYPERTENSION
     Dosage: 1 DF, 1X/DAY
     Route: 048
     Dates: start: 20120606, end: 20171229

REACTIONS (1)
  - Hepatitis B reactivation [Recovering/Resolving]

NARRATIVE: CASE EVENT DATE: 20171205
